FAERS Safety Report 6518451-8 (Version None)
Quarter: 2009Q4

REPORT INFORMATION
  Report Type: 
  Country: None (occurrence: None)
  Receive Date: 20091225
  Receipt Date: 20091124
  Transmission Date: 20100525
  Serious: No
  Sender: FDA-Public Use
  Company Number: US-BAYER-200941274NA

PATIENT
  Age: 36 Year
  Sex: Female
  Weight: 90 kg

DRUGS (3)
  1. MIRENA [Suspect]
     Indication: CONTRACEPTION
     Dosage: CONTINUOUS
     Route: 015
     Dates: start: 20060101
  2. FLAGYL [Concomitant]
     Indication: VAGINAL DISCHARGE
  3. CIPRO [Concomitant]
     Indication: VAGINAL DISCHARGE

REACTIONS (2)
  - VAGINAL DISCHARGE [None]
  - WEIGHT INCREASED [None]
